FAERS Safety Report 5739961-7 (Version None)
Quarter: 2008Q2

REPORT INFORMATION
  Report Type: 
  Country: None (occurrence: None)
  Receive Date: 20080513
  Receipt Date: 20080429
  Transmission Date: 20081010
  Serious: Yes (Hospitalization)
  Sender: FDA-Public Use
  Company Number: 100#02#2008-01891

PATIENT
  Age: 8 Month
  Sex: Male

DRUGS (2)
  1. AZITHROMYCIN [Suspect]
     Indication: BRONCHITIS
     Dosage: 100 MG ON THE 1ST DAY DECREASED TO 50 MG ON THE 2ND DAY ORAL
     Route: 048
     Dates: start: 20080402, end: 20080404
  2. CALPOL (PARACETAMOL0 [Concomitant]

REACTIONS (2)
  - DRUG INEFFECTIVE [None]
  - PNEUMONIA [None]
